FAERS Safety Report 11293188 (Version 3)
Quarter: 2020Q3

REPORT INFORMATION
  Report Type: Spontaneous
  Country: BR (occurrence: BR)
  Receive Date: 20150722
  Receipt Date: 20200909
  Transmission Date: 20201102
  Serious: Yes (Hospitalization, Other)
  Sender: FDA-Public Use
  Company Number: BR-BIOMARINAP-BR-2015-106894

PATIENT
  Age: 11 Year
  Sex: Female
  Weight: 32.7 kg

DRUGS (6)
  1. CLENIL [BECLOMETASONE DIPROPIONATE] [Concomitant]
     Indication: LUNG DISORDER
     Route: 045
  2. MACRODANTIN [Concomitant]
     Active Substance: NITROFURANTOIN
     Indication: PROPHYLAXIS URINARY TRACT INFECTION
     Dosage: 100 MILLIGRAM, QD
  3. BUDESONIDE. [Concomitant]
     Active Substance: BUDESONIDE
     Indication: BRONCHOSPASM
  4. VIMIZIM [Suspect]
     Active Substance: ELOSULFASE ALFA
     Indication: MUCOPOLYSACCHARIDOSIS IV
     Dosage: 60 MG, QW
     Route: 042
     Dates: start: 20141112
  5. BUDESONIDE. [Concomitant]
     Active Substance: BUDESONIDE
     Indication: LUNG DISORDER
     Route: 045
  6. CLENIL [BECLOMETASONE DIPROPIONATE] [Concomitant]
     Indication: BRONCHOSPASM

REACTIONS (3)
  - Pneumonia [Unknown]
  - Scoliosis [Unknown]
  - Cervical spinal stenosis [Recovering/Resolving]

NARRATIVE: CASE EVENT DATE: 20150717
